FAERS Safety Report 12630557 (Version 1)
Quarter: 2016Q3

REPORT INFORMATION
  Report Type: Spontaneous
  Country: DE (occurrence: DE)
  Receive Date: 20160808
  Receipt Date: 20160808
  Transmission Date: 20161109
  Serious: Yes (Other)
  Sender: FDA-Public Use
  Company Number: DE-TEVA-683429GER

PATIENT
  Age: 29 Year
  Sex: Female
  Weight: 93 kg

DRUGS (14)
  1. INSULIN HUMAN [Concomitant]
     Active Substance: INSULIN HUMAN
     Indication: GESTATIONAL DIABETES
     Route: 058
  2. ANXUT [Concomitant]
     Indication: DEPRESSION
     Dosage: 30 (MG/D)/ DOSAGE BETWEEN 10 AND 30 MG/D
     Route: 048
  3. SERTRALINE [Concomitant]
     Active Substance: SERTRALINE HYDROCHLORIDE
     Indication: DEPRESSION
     Dosage: 50 (MG/D)/ IF REQUIRED, SELDOM?
     Route: 048
  4. FOLSAEURE (NEM) [Concomitant]
     Indication: PROPHYLAXIS OF NEURAL TUBE DEFECT
     Dosage: .4 MILLIGRAM DAILY;
     Route: 048
     Dates: start: 20150706, end: 20160329
  5. SALBUTAMOL [Concomitant]
     Active Substance: ALBUTEROL
     Indication: ASTHMA
     Route: 055
  6. ELONTRIL [Concomitant]
     Active Substance: BUPROPION HYDROCHLORIDE
     Indication: DEPRESSION
     Dosage: 150 (MG/D)/ FOUR TIMES, UNKNOWN WHEN
     Route: 048
  7. AMISULPRID [Suspect]
     Active Substance: AMISULPRIDE
     Indication: DEPRESSION
     Dosage: 300 (MG/D)/ DOSAGE BETWEEN 100 AND 300 MG/D
     Route: 048
     Dates: start: 20150706, end: 20160329
  8. TREVILOR RETARD [Suspect]
     Active Substance: VENLAFAXINE HYDROCHLORIDE
     Indication: DEPRESSION
     Dosage: 300 (MG/D)/ REDUCED TO 150MG/D
     Route: 048
     Dates: start: 20150706, end: 20160329
  9. CITALOPRAM [Concomitant]
     Active Substance: CITALOPRAM HYDROBROMIDE
     Indication: DEPRESSION
     Dosage: 20 MILLIGRAM DAILY;
     Route: 048
  10. BISOPROLOL [Concomitant]
     Active Substance: BISOPROLOL
     Indication: HYPERTENSION
     Dosage: 5 MILLIGRAM DAILY;
     Route: 048
     Dates: start: 20150706, end: 20160329
  11. ANAFRANIL [Suspect]
     Active Substance: CLOMIPRAMINE HYDROCHLORIDE
     Indication: DEPRESSION
     Dosage: 150 /MG/D)/ IF REQUIRED, ABOUT EVERY THIRD DAY
     Route: 048
     Dates: start: 20150706, end: 20160329
  12. METHYLDOPA. [Concomitant]
     Active Substance: METHYLDOPA
     Indication: HYPERTENSION
     Dosage: 250 MILLIGRAM DAILY;
     Route: 048
  13. INUVAIR [Concomitant]
     Active Substance: BECLOMETHASONE DIPROPIONATE\FORMOTEROL FUMARATE
     Indication: ASTHMA
     Route: 055
  14. MIRTAZAPIN [Suspect]
     Active Substance: MIRTAZAPINE
     Indication: DEPRESSION
     Dosage: 60 (MG/D)/ DOSAGE BETWEEN 30 AND 60 MG/D
     Route: 048
     Dates: start: 20150706, end: 20160329

REACTIONS (3)
  - Gestational diabetes [Unknown]
  - Pre-eclampsia [Unknown]
  - Exposure during pregnancy [Unknown]
